FAERS Safety Report 21915483 (Version 1)
Quarter: 2023Q1

REPORT INFORMATION
  Report Type: Spontaneous
  Country: CA (occurrence: CA)
  Receive Date: 20230126
  Receipt Date: 20230126
  Transmission Date: 20230417
  Serious: Yes (Hospitalization)
  Sender: FDA-Public Use
  Company Number: CA-BAYER-2023A008050

PATIENT
  Age: 84 Year
  Sex: Male
  Weight: 88 kg

DRUGS (20)
  1. CIPRO [Suspect]
     Active Substance: CIPROFLOXACIN HYDROCHLORIDE
     Indication: Pyelonephritis acute
     Dosage: 500 MG, ONCE
     Route: 048
  2. CIPRO [Suspect]
     Active Substance: CIPROFLOXACIN HYDROCHLORIDE
     Indication: Pyelonephritis acute
     Dosage: 500 MG, BID
     Route: 048
  3. VITAMIN B12 [Concomitant]
     Active Substance: CYANOCOBALAMIN
  4. PERINDOPRIL ERBUMINE [Concomitant]
     Active Substance: PERINDOPRIL ERBUMINE
  5. LORAZEPAM [Concomitant]
     Active Substance: LORAZEPAM
  6. ANORO ELLIPTA [Concomitant]
     Active Substance: UMECLIDINIUM BROMIDE\VILANTEROL TRIFENATATE
  7. ONDANSETRON [Concomitant]
     Active Substance: ONDANSETRON
  8. VITAMIN K [Concomitant]
     Active Substance: PHYTONADIONE
  9. HYDROMORPHONE [Concomitant]
     Active Substance: HYDROMORPHONE
  10. POTASSIUM [Concomitant]
     Active Substance: POTASSIUM
  11. MAGNESIUM SULFATE [Concomitant]
     Active Substance: MAGNESIUM SULFATE
  12. FINASTERIDE [Concomitant]
     Active Substance: FINASTERIDE
  13. ASPIRIN [Concomitant]
     Active Substance: ASPIRIN
  14. POLYETHYLENE GLYCOLS [Concomitant]
     Active Substance: POLYETHYLENE GLYCOLS
  15. ACETAMINOPHEN [Concomitant]
     Active Substance: ACETAMINOPHEN
  16. ROSUVASTATIN [Concomitant]
     Active Substance: ROSUVASTATIN
  17. PANTOPRAZOLE [Concomitant]
     Active Substance: PANTOPRAZOLE
  18. HEPARIN SODIUM [Concomitant]
     Active Substance: HEPARIN SODIUM
  19. VITAMIN B1 [Concomitant]
     Active Substance: THIAMINE HYDROCHLORIDE
  20. MORPHINE [Concomitant]
     Active Substance: MORPHINE

REACTIONS (2)
  - Diarrhoea [Recovered/Resolved]
  - Dehydration [Recovered/Resolved]
